FAERS Safety Report 10387763 (Version 1)
Quarter: 2014Q3

REPORT INFORMATION
  Report Type: Spontaneous
  Country: IT (occurrence: None)
  Receive Date: 20140813
  Receipt Date: 20140813
  Transmission Date: 20150326
  Serious: Yes (Other)
  Sender: FDA-Public Use
  Company Number: 2473666

PATIENT
  Age: 56 Year
  Sex: Female
  Weight: 140 kg

DRUGS (2)
  1. CARBOPLATIN. [Concomitant]
     Active Substance: CARBOPLATIN
  2. PACLITAXEL. [Suspect]
     Active Substance: PACLITAXEL
     Indication: MALIGNANT NEOPLASM OF UNKNOWN PRIMARY SITE
     Dosage: CYCLICAL ??(NOT OTHERWISE SPECIFIED)
     Route: 042
     Dates: start: 20140613, end: 20140704

REACTIONS (5)
  - Throat tightness [None]
  - Erythema [None]
  - Abdominal pain [None]
  - Lacrimation increased [None]
  - Dry mouth [None]

NARRATIVE: CASE EVENT DATE: 20140730
